FAERS Safety Report 10246320 (Version 1)
Quarter: 2014Q2

REPORT INFORMATION
  Report Type: Spontaneous
  Country: US (occurrence: None)
  Receive Date: 20140617
  Receipt Date: 20140617
  Transmission Date: 20141212
  Serious: Yes (Hospitalization)
  Sender: FDA-Public Use
  Company Number: IPC201406-000298

PATIENT
  Age: 65 Year
  Sex: Male

DRUGS (1)
  1. METFORMIN HYDROCHLORIDE [Suspect]
     Indication: TYPE 2 DIABETES MELLITUS

REACTIONS (7)
  - Lactic acidosis [None]
  - Hyperkalaemia [None]
  - Toxicity to various agents [None]
  - Blood creatinine increased [None]
  - Anion gap increased [None]
  - Cardiac arrest [None]
  - Haemodialysis [None]
